FAERS Safety Report 5645360-9 (Version None)
Quarter: 2008Q1

REPORT INFORMATION
  Report Type: 
  Country: None (occurrence: None)
  Receive Date: 20080229
  Receipt Date: 20080221
  Transmission Date: 20080703
  Serious: Yes (Hospitalization)
  Sender: FDA-Public Use
  Company Number: D0056230A

PATIENT
  Age: 74 Year
  Sex: Female

DRUGS (1)
  1. ADARTREL [Suspect]
     Indication: RESTLESS LEGS SYNDROME
     Route: 048
     Dates: start: 20070101

REACTIONS (2)
  - ILEUS [None]
  - SMALL INTESTINE ULCER [None]
